FAERS Safety Report 8348568-7 (Version None)
Quarter: 2012Q2

REPORT INFORMATION
  Report Type: 
  Country: None (occurrence: None)
  Receive Date: 20120510
  Receipt Date: 20120331
  Transmission Date: 20120825
  Serious: Yes (Other)
  Sender: FDA-Public Use
  Company Number: ZA-BRISTOL-MYERS SQUIBB COMPANY-15651763

PATIENT
  Age: 43 Year
  Sex: Male

DRUGS (13)
  1. METFORMIN HCL [Suspect]
     Indication: TYPE 2 DIABETES MELLITUS
  2. RIFAFOUR [Concomitant]
     Dosage: 1DF= 1UNIT
     Route: 048
     Dates: start: 20110105, end: 20110801
  3. PLACEBO [Suspect]
     Indication: TYPE 2 DIABETES MELLITUS
     Dates: start: 20101209
  4. AMITRIPTYLINE HCL [Concomitant]
     Indication: DIABETIC NEUROPATHY
     Route: 048
  5. STREPTOMYCIN [Concomitant]
     Route: 030
     Dates: start: 20110105, end: 20110215
  6. BLINDED: SAXAGLIPTIN [Suspect]
     Indication: TYPE 2 DIABETES MELLITUS
     Dates: start: 20101209
  7. ACETAMINOPHEN [Concomitant]
     Route: 048
  8. PYRIDOXINE HCL [Concomitant]
     Indication: DIABETIC NEUROPATHY
     Route: 048
  9. GLICLAZIDE [Suspect]
     Indication: TYPE 2 DIABETES MELLITUS
  10. ASPIRIN [Concomitant]
  11. VITAMIN B COMPLEX CAP [Concomitant]
     Indication: DIABETIC NEUROPATHY
     Route: 048
  12. ALLOPURINOL [Concomitant]
     Indication: GOUT
     Route: 048
  13. AMITRIPTYLINE HCL [Concomitant]

REACTIONS (1)
  - PULMONARY TUBERCULOSIS [None]
